FAERS Safety Report 18217350 (Version 1)
Quarter: 2020Q3

REPORT INFORMATION
  Report Type: Spontaneous
  Country: SE (occurrence: SE)
  Receive Date: 20200901
  Receipt Date: 20200901
  Transmission Date: 20201103
  Serious: Yes (Hospitalization)
  Sender: FDA-Public Use
  Company Number: SE-MYLANLABS-2020M1074621

PATIENT
  Age: 58 Year
  Sex: Female

DRUGS (7)
  1. DIKLOFENAK ?MYLAN? [Suspect]
     Active Substance: DICLOFENAC SODIUM
     Indication: ARTHRITIS
  2. METOPROLOL TARTRATE. [Concomitant]
     Active Substance: METOPROLOL TARTRATE
     Indication: HYPERTENSION
     Dosage: UNK
     Dates: start: 1996
  3. AERIUS                             /01009701/ [Concomitant]
     Active Substance: EBASTINE
     Dosage: UNK
     Dates: start: 1999
  4. DIKLOFENAK ?MYLAN? [Suspect]
     Active Substance: DICLOFENAC SODIUM
     Indication: ARTHRALGIA
     Dosage: 50 MILLIGRAM, BID
  5. LEVAXIN [Concomitant]
     Active Substance: LEVOTHYROXINE SODIUM
     Dosage: UNK
     Dates: start: 1999
  6. METFORMIN [Concomitant]
     Active Substance: METFORMIN HYDROCHLORIDE
     Dosage: UNK
     Dates: start: 2018
  7. OMEPRAZOL PENSA                    /00661201/ [Concomitant]
     Active Substance: OMEPRAZOLE
     Dosage: UNK
     Dates: start: 2000

REACTIONS (6)
  - Product availability issue [Unknown]
  - Incorrect product administration duration [Unknown]
  - Pneumonia [Unknown]
  - Osteomyelitis [Unknown]
  - Sepsis [Unknown]
  - Back pain [Unknown]

NARRATIVE: CASE EVENT DATE: 20160621
